FAERS Safety Report 10068711 (Version 3)
Quarter: 2014Q3

REPORT INFORMATION
  Report Type: Spontaneous
  Country: CA (occurrence: CA)
  Receive Date: 20140409
  Receipt Date: 20140729
  Transmission Date: 20150326
  Serious: Yes (Hospitalization)
  Sender: FDA-Public Use
  Company Number: CA-ASTELLAS-2014US003649

PATIENT
  Sex: Male

DRUGS (3)
  1. MYRBETRIQ [Suspect]
     Active Substance: MIRABEGRON
     Route: 048
  2. MYRBETRIQ [Suspect]
     Active Substance: MIRABEGRON
     Indication: HYPERTONIC BLADDER
     Route: 048
  3. MYRBETRIQ [Suspect]
     Active Substance: MIRABEGRON
     Route: 048

REACTIONS (5)
  - Stress urinary incontinence [Recovering/Resolving]
  - Micturition urgency [Recovering/Resolving]
  - Inappropriate schedule of drug administration [Unknown]
  - Investigation [Unknown]
  - Drug effect incomplete [Unknown]
